FAERS Safety Report 10710878 (Version 5)
Quarter: 2015Q3

REPORT INFORMATION
  Report Type: Spontaneous
  Country: US (occurrence: US)
  Receive Date: 20150114
  Receipt Date: 20150810
  Transmission Date: 20151125
  Serious: Yes (Hospitalization)
  Sender: FDA-Public Use
  Company Number: US-ASTELLAS-2015US000871

PATIENT
  Age: 91 Year
  Sex: Female

DRUGS (2)
  1. TARCEVA [Suspect]
     Active Substance: ERLOTINIB HYDROCHLORIDE
     Indication: LUNG NEOPLASM MALIGNANT
     Route: 048
     Dates: start: 20141212, end: 20150603
  2. TARCEVA [Suspect]
     Active Substance: ERLOTINIB HYDROCHLORIDE
     Indication: BONE CANCER
     Dosage: 100 MG, DAILY
     Dates: start: 20150604

REACTIONS (15)
  - Pneumonia [Unknown]
  - Rash [Unknown]
  - Impetigo [Unknown]
  - Glossodynia [Unknown]
  - Haemorrhage [Unknown]
  - Dehydration [Unknown]
  - Thirst decreased [Unknown]
  - Alopecia [Not Recovered/Not Resolved]
  - Alopecia [Unknown]
  - Skin fissures [Not Recovered/Not Resolved]
  - Conjunctivitis [Not Recovered/Not Resolved]
  - Depressed mood [Not Recovered/Not Resolved]
  - Decreased appetite [Unknown]
  - Haemorrhoids [Unknown]
  - Conjunctivitis [Recovered/Resolved]

NARRATIVE: CASE EVENT DATE: 20150317
